FAERS Safety Report 21408143 (Version 6)
Quarter: 2023Q4

REPORT INFORMATION
  Report Type: Report from Study
  Country: US (occurrence: US)
  Receive Date: 20221004
  Receipt Date: 20231102
  Transmission Date: 20240109
  Serious: Yes (Other)
  Sender: FDA-Public Use
  Company Number: US-NOVARTISPH-NVSC2022US223703

PATIENT
  Sex: Female

DRUGS (1)
  1. XIIDRA [Suspect]
     Active Substance: LIFITEGRAST
     Indication: Product used for unknown indication
     Dosage: UNK
     Route: 047

REACTIONS (8)
  - Pneumonia [Unknown]
  - Glaucoma [Unknown]
  - Infection [Unknown]
  - Wheezing [Unknown]
  - Cough [Unknown]
  - Pyrexia [Unknown]
  - Illness [Unknown]
  - Malaise [Unknown]
